FAERS Safety Report 20386561 (Version 1)
Quarter: 2022Q1

REPORT INFORMATION
  Report Type: Spontaneous
  Country: FR (occurrence: FR)
  Receive Date: 20220127
  Receipt Date: 20220127
  Transmission Date: 20220423
  Serious: Yes (Hospitalization)
  Sender: FDA-Public Use
  Company Number: FR-NOVARTISPH-NVSC2022FR013803

PATIENT
  Sex: Female

DRUGS (4)
  1. MEKINIST [Suspect]
     Active Substance: TRAMETINIB DIMETHYL SULFOXIDE
     Indication: Product used for unknown indication
     Dosage: UNKNOWN
     Route: 065
     Dates: start: 20211220
  2. MEKINIST [Suspect]
     Active Substance: TRAMETINIB DIMETHYL SULFOXIDE
     Dosage: UNKNOWN
     Route: 065
     Dates: start: 20220113
  3. TAFINLAR [Suspect]
     Active Substance: DABRAFENIB MESYLATE
     Indication: Product used for unknown indication
     Dosage: UNKNOWN
     Route: 065
     Dates: start: 20211220
  4. TAFINLAR [Suspect]
     Active Substance: DABRAFENIB MESYLATE
     Dosage: UNKNOWN
     Route: 065
     Dates: start: 20220113

REACTIONS (18)
  - Toxicity to various agents [Recovered/Resolved]
  - Nausea [Recovered/Resolved]
  - Vomiting [Recovered/Resolved]
  - Cell death [Recovered/Resolved]
  - Meningitis [Recovered/Resolved]
  - Inflammatory pain [Recovered/Resolved]
  - Pyrexia [Recovered/Resolved]
  - Malaise [Recovered/Resolved]
  - Rash [Recovered/Resolved]
  - Diarrhoea [Recovered/Resolved]
  - Arthralgia [Recovered/Resolved]
  - Oedema peripheral [Recovered/Resolved]
  - Pyrexia [Recovered/Resolved]
  - Acute kidney injury [Recovered/Resolved]
  - Hepatic cytolysis [Recovered/Resolved]
  - Rhabdomyolysis [Recovered/Resolved]
  - Loss of consciousness [Recovered/Resolved]
  - Central nervous system lesion [Recovered/Resolved]

NARRATIVE: CASE EVENT DATE: 20211223
